FAERS Safety Report 5875278-8 (Version None)
Quarter: 2008Q3

REPORT INFORMATION
  Report Type: 
  Country: None (occurrence: None)
  Receive Date: 20080909
  Receipt Date: 20080904
  Transmission Date: 20090109
  Serious: Yes (Hospitalization)
  Sender: FDA-Public Use
  Company Number: US-MERCK-0809USA00815

PATIENT
  Age: 60 Year
  Sex: Male

DRUGS (4)
  1. JANUMET [Suspect]
     Indication: BLOOD GLUCOSE
     Route: 048
  2. TRICOR [Concomitant]
     Route: 065
  3. STARLIX [Concomitant]
     Indication: BLOOD GLUCOSE
     Route: 065
  4. JANUVIA [Concomitant]
     Indication: BLOOD GLUCOSE
     Route: 048

REACTIONS (1)
  - PANCREATITIS [None]
